FAERS Safety Report 24271163 (Version 1)
Quarter: 2024Q3

REPORT INFORMATION
  Report Type: Spontaneous
  Country: CN (occurrence: CN)
  Receive Date: 20240831
  Receipt Date: 20240831
  Transmission Date: 20241017
  Serious: Yes (Other)
  Sender: BOEHRINGER INGELHEIM
  Company Number: CN-BoehringerIngelheim-2024-BI-048777

PATIENT
  Age: 83 Year
  Sex: Female
  Weight: 56.0 kg

DRUGS (1)
  1. LINAGLIPTIN [Suspect]
     Active Substance: LINAGLIPTIN
     Indication: Diabetes mellitus
     Route: 048
     Dates: start: 20240815, end: 20240818

REACTIONS (1)
  - Genitourinary tract infection [Recovering/Resolving]

NARRATIVE: CASE EVENT DATE: 20240818
